FAERS Safety Report 7440874-3 (Version None)
Quarter: 2011Q2

REPORT INFORMATION
  Report Type: 
  Country: None (occurrence: None)
  Receive Date: 20110427
  Receipt Date: 20091008
  Transmission Date: 20111010
  Serious: Yes (Death, Hospitalization, Other)
  Sender: FDA-Public Use
  Company Number: US-BAYER-200937854NA

PATIENT
  Age: 77 Year
  Sex: Female
  Weight: 70 kg

DRUGS (24)
  1. VIOXX [Concomitant]
     Indication: MUSCULOSKELETAL STIFFNESS
     Dosage: 25 MG, UNK
     Route: 048
     Dates: start: 20010611, end: 20011211
  2. COUMADIN [Concomitant]
     Indication: ARRHYTHMIA
     Dosage: 2.5 MG, UNK
     Route: 048
     Dates: start: 20020111, end: 20020307
  3. FENTANYL [Concomitant]
     Indication: ANALGESIC THERAPY
     Dosage: 1500 MCG
     Route: 042
     Dates: start: 20020211, end: 20020211
  4. DOBUTAMINE HYDROCHLORIDE [Concomitant]
     Indication: CARDIAC OUTPUT INCREASED
     Dosage: 3-5 MCG/KG/HR
     Route: 042
     Dates: start: 20020211, end: 20020211
  5. SOLU-MEDROL [Concomitant]
     Indication: INFLAMMATION
     Dosage: 490 MG, UNK
     Route: 042
     Dates: start: 20020211, end: 20020211
  6. AMIODARONE [Concomitant]
     Indication: ARRHYTHMIA
     Dosage: 200 MG, UNK
     Route: 048
     Dates: start: 20020220
  7. LIDOCAINE [Concomitant]
     Dosage: 200 MG, UNK
     Route: 042
     Dates: start: 20020211, end: 20020211
  8. TRASYLOL [Suspect]
     Indication: AORTIC VALVE REPLACEMENT
     Dosage: 1 ML, ONCE (INITIAL)
     Route: 042
     Dates: start: 20020211, end: 20020211
  9. INTEGRILIN [Concomitant]
     Indication: CATHETERISATION CARDIAC
     Dosage: 2 MCG/KG/MIN (18 HRS ONLY)
     Route: 042
     Dates: start: 20011227, end: 20011228
  10. RED BLOOD CELLS, CONCENTRATED [Concomitant]
     Dosage: 2 U, UNK
     Dates: start: 20020211
  11. TRASYLOL [Suspect]
     Dosage: 25 ML/HR (INFUSION)
     Route: 042
     Dates: start: 20020211, end: 20020211
  12. METOPROLOL [Concomitant]
     Indication: HYPERTENSION
     Dosage: 50 MG, UNK
     Route: 048
     Dates: start: 20011231, end: 20020314
  13. PANCURONIUM BROMIDE [Concomitant]
     Indication: PARALYSIS
     Dosage: 12 MG, UNK
     Route: 042
     Dates: start: 20020211, end: 20020211
  14. PROTAMINE SULFATE [Concomitant]
     Indication: COAGULOPATHY
     Dosage: 250 MG, UNK
     Route: 042
     Dates: start: 20020211, end: 20020211
  15. VERSED [Concomitant]
     Indication: ANAESTHESIA
     Dosage: 7 MG, UNK
     Route: 042
     Dates: start: 20020211, end: 20020211
  16. PLAVIX [Concomitant]
     Indication: CORONARY ARTERY DISEASE
     Dosage: 75 MG, UNK
     Route: 048
     Dates: start: 20011231, end: 20020124
  17. CELEBREX [Concomitant]
     Indication: MUSCULOSKELETAL STIFFNESS
     Dosage: 200 MG, UNK
     Route: 048
     Dates: start: 20011211, end: 20020314
  18. LIPITOR [Concomitant]
     Indication: BLOOD CHOLESTEROL INCREASED
     Dosage: 40 MG, UNK
     Route: 048
     Dates: end: 20020307
  19. HEPARIN [Concomitant]
     Indication: ANTICOAGULANT THERAPY
     Dosage: 2000 U = 4 MG/KG
     Route: 042
     Dates: start: 20020211, end: 20020211
  20. OPTIRAY 350 [IODINE,IOVERSOL] [Concomitant]
     Dosage: 400 ML, UNK
     Dates: start: 20011228
  21. TRASYLOL [Suspect]
     Indication: MITRAL VALVE REPLACEMENT
     Dosage: 100 ML ONCE (LOADING)
     Route: 042
     Dates: start: 20020211, end: 20020211
  22. ACETYLSALICYLIC ACID SRT [Concomitant]
     Indication: CORONARY ARTERY DISEASE
     Dosage: 325 MG, UNK
     Route: 048
     Dates: start: 20011231, end: 20020314
  23. NITROGLYCERIN [Concomitant]
     Indication: VASODILATION PROCEDURE
     Dosage: 5 MG/KG
     Route: 042
     Dates: start: 20020211, end: 20020211
  24. PHENYLEPHRIN [Concomitant]
     Dosage: 1 U, UNK
     Route: 042
     Dates: start: 20020211, end: 20020211

REACTIONS (14)
  - STRESS [None]
  - ANXIETY [None]
  - PAIN [None]
  - ANHEDONIA [None]
  - CEREBROVASCULAR ACCIDENT [None]
  - MULTI-ORGAN FAILURE [None]
  - EMOTIONAL DISTRESS [None]
  - RENAL IMPAIRMENT [None]
  - RENAL FAILURE [None]
  - RENAL INJURY [None]
  - FEAR [None]
  - INJURY [None]
  - UNEVALUABLE EVENT [None]
  - DEATH [None]
